FAERS Safety Report 22222516 (Version 1)
Quarter: 2023Q2

REPORT INFORMATION
  Report Type: Spontaneous
  Country: US (occurrence: US)
  Receive Date: 20230418
  Receipt Date: 20230418
  Transmission Date: 20230722
  Serious: No
  Sender: FDA-Public Use
  Company Number: US-TAKEDA-2023TUS036804

PATIENT
  Age: 23 Year
  Sex: Male
  Weight: 64 kg

DRUGS (3)
  1. VYVANSE [Suspect]
     Active Substance: LISDEXAMFETAMINE DIMESYLATE
     Indication: Attention deficit hyperactivity disorder
     Dosage: 20 MILLIGRAM
     Route: 065
     Dates: start: 202301
  2. VYVANSE [Suspect]
     Active Substance: LISDEXAMFETAMINE DIMESYLATE
     Dosage: 30 MILLIGRAM
     Route: 065
  3. COLCHICINE [Concomitant]
     Active Substance: COLCHICINE
     Indication: Myocarditis
     Dosage: UNK
     Route: 065

REACTIONS (3)
  - Drug ineffective [Unknown]
  - Product physical issue [Unknown]
  - Headache [Unknown]
